FAERS Safety Report 20330407 (Version 1)
Quarter: 2022Q1

REPORT INFORMATION
  Report Type: Spontaneous
  Country: US (occurrence: US)
  Receive Date: 20220113
  Receipt Date: 20220113
  Transmission Date: 20220423
  Serious: No
  Sender: FDA-Public Use
  Company Number: US-BIOVITRUM-2022US00398

PATIENT
  Sex: Female
  Weight: 7 kg

DRUGS (6)
  1. SYNAGIS [Suspect]
     Active Substance: PALIVIZUMAB
     Indication: Premature baby
     Dates: start: 20211006
  2. MULTIVITAMINS WITH IRON TABLET [Concomitant]
  3. POTASSIUM CHLORIDE GRANULES [Concomitant]
  4. LASIX 20 MG TABLET [Concomitant]
  5. SYNAGIS [Suspect]
     Active Substance: PALIVIZUMAB
     Indication: Lung disorder
  6. SYNAGIS [Suspect]
     Active Substance: PALIVIZUMAB
     Indication: Oxygen therapy

REACTIONS (1)
  - Malaise [Unknown]
